FAERS Safety Report 4395753-5 (Version None)
Quarter: 2004Q3

REPORT INFORMATION
  Report Type: 
  Country: None (occurrence: None)
  Receive Date: 20040708
  Receipt Date: 20040623
  Transmission Date: 20050211
  Serious: Yes (Other)
  Sender: FDA-Public Use
  Company Number: 163-20785-04050094

PATIENT
  Age: 73 Year
  Sex: Female

DRUGS (6)
  1. THALOMID [Suspect]
     Indication: MULTIPLE MYELOMA
     Dosage: SEE IMAGE
     Route: 048
     Dates: start: 20031113, end: 20040101
  2. THALOMID [Suspect]
     Indication: MULTIPLE MYELOMA
     Dosage: SEE IMAGE
     Route: 048
     Dates: start: 20040101
  3. ATENOLOL [Concomitant]
  4. NORVASC [Concomitant]
  5. LASIX [Concomitant]
  6. K-TABS (POTASSIUM) [Concomitant]

REACTIONS (8)
  - BLINDNESS [None]
  - DRY SKIN [None]
  - DRY THROAT [None]
  - GASTRIC DILATATION [None]
  - INTRAOCULAR PRESSURE INCREASED [None]
  - KERATOCONJUNCTIVITIS SICCA [None]
  - ORAL MUCOSAL BLISTERING [None]
  - POLLAKIURIA [None]
